FAERS Safety Report 16682322 (Version 1)
Quarter: 2019Q3

REPORT INFORMATION
  Report Type: Not Available
  Country: US (occurrence: US)
  Receive Date: 20190808
  Receipt Date: 20190808
  Transmission Date: 20191004
  Serious: No
  Sender: FDA-Public Use
  Company Number: US-JIANGSU HENGRUI MEDICINE CO., LTD.-2072909

PATIENT

DRUGS (6)
  1. PREDNISONE. [Concomitant]
     Active Substance: PREDNISONE
  2. ETOPOSIDE. [Concomitant]
     Active Substance: ETOPOSIDE
  3. DOXORUBICIN [Concomitant]
     Active Substance: DOXORUBICIN
  4. CYCLOPHOSPHAMIDE FOR INJECTION USP, 500 MG, 1 G AND 2 G PER SINGLE-DOS [Suspect]
     Active Substance: CYCLOPHOSPHAMIDE
     Indication: DIFFUSE LARGE B-CELL LYMPHOMA RECURRENT
  5. VINCRISTINE [Concomitant]
     Active Substance: VINCRISTINE
  6. RITUXIMAB. [Concomitant]
     Active Substance: RITUXIMAB

REACTIONS (1)
  - Neoplasm recurrence [Not Recovered/Not Resolved]
